FAERS Safety Report 18288113 (Version 1)
Quarter: 2020Q3

REPORT INFORMATION
  Report Type: Spontaneous
  Country: US (occurrence: US)
  Receive Date: 20200921
  Receipt Date: 20200921
  Transmission Date: 20201103
  Serious: No
  Sender: FDA-Public Use
  Company Number: US-BIOVITRUM-2020US5013

PATIENT
  Age: 14 Year
  Sex: Female

DRUGS (2)
  1. METFORMIN [Concomitant]
     Active Substance: METFORMIN HYDROCHLORIDE
  2. KINERET [Suspect]
     Active Substance: ANAKINRA
     Indication: STILL^S DISEASE
     Route: 058
     Dates: start: 20200902

REACTIONS (4)
  - Myalgia [Unknown]
  - Injection site pain [Unknown]
  - Off label use [Unknown]
  - Pruritus [Unknown]

NARRATIVE: CASE EVENT DATE: 20200902
